FAERS Safety Report 15478248 (Version 1)
Quarter: 2018Q4

REPORT INFORMATION
  Report Type: Spontaneous
  Country: KR (occurrence: KR)
  Receive Date: 20181009
  Receipt Date: 20181009
  Transmission Date: 20190205
  Serious: Yes (Hospitalization, Other)
  Sender: FDA-Public Use
  Company Number: KR-SA-2018SA270737

PATIENT
  Age: 72 Year
  Sex: Male

DRUGS (5)
  1. VILDAGLIPTIN [Suspect]
     Active Substance: VILDAGLIPTIN
     Indication: TYPE 2 DIABETES MELLITUS
     Dosage: UNK
  2. INSULIN DETEMIR [Suspect]
     Active Substance: INSULIN DETEMIR
     Indication: TYPE 2 DIABETES MELLITUS
     Dosage: 30 IU
  3. GLIMEPIRIDE. [Suspect]
     Active Substance: GLIMEPIRIDE
     Indication: TYPE 2 DIABETES MELLITUS
     Dosage: UNK
  4. METFORMIN HYDROCHLORIDE. [Suspect]
     Active Substance: METFORMIN HYDROCHLORIDE
     Indication: TYPE 2 DIABETES MELLITUS
     Dosage: 500 MG, QD
  5. INSULIN [Suspect]
     Active Substance: INSULIN NOS
     Indication: TYPE 2 DIABETES MELLITUS
     Dosage: UNK

REACTIONS (9)
  - Chronic kidney disease [Unknown]
  - Insulin resistance [Unknown]
  - Hypoglycaemia [Recovered/Resolved]
  - Proteinuria [Recovered/Resolved]
  - Arthralgia [Unknown]
  - Hyperglycaemia [Recovered/Resolved]
  - Treatment noncompliance [Unknown]
  - Weight increased [Recovered/Resolved]
  - Glycosylated haemoglobin increased [Unknown]
